FAERS Safety Report 15104979 (Version 3)
Quarter: 2018Q3

REPORT INFORMATION
  Report Type: Spontaneous
  Country: US (occurrence: US)
  Receive Date: 20180703
  Receipt Date: 20180726
  Transmission Date: 20181010
  Serious: Yes (Hospitalization)
  Sender: FDA-Public Use
  Company Number: US-BIOMARINAP-US-2018-118875

PATIENT
  Age: 3 Year
  Sex: Female
  Weight: 22 kg

DRUGS (1)
  1. KUVAN [Suspect]
     Active Substance: SAPROPTERIN DIHYDROCHLORIDE
     Indication: PHENYLKETONURIA
     Dosage: 400 MG, QD
     Route: 048
     Dates: start: 20180621

REACTIONS (6)
  - Vomiting [Recovering/Resolving]
  - Influenza [Recovering/Resolving]
  - Urinary tract infection [Recovering/Resolving]
  - Sinusitis [Recovering/Resolving]
  - Abdominal pain upper [Recovering/Resolving]
  - Escherichia infection [Unknown]

NARRATIVE: CASE EVENT DATE: 20180622
